FAERS Safety Report 8225027-3 (Version None)
Quarter: 2012Q1

REPORT INFORMATION
  Report Type: 
  Country: None (occurrence: None)
  Receive Date: 20120319
  Receipt Date: 20120306
  Transmission Date: 20120608
  Serious: Yes (Hospitalization, Other)
  Sender: FDA-Public Use
  Company Number: 2011SP051007

PATIENT
  Age: 62 Year
  Sex: Male

DRUGS (1)
  1. PEG-INTRON [Suspect]
     Indication: HEPATITIS C
     Dates: start: 20110728, end: 20120222

REACTIONS (14)
  - WOUND INFECTION [None]
  - FALL [None]
  - DECREASED APPETITE [None]
  - LOSS OF CONSCIOUSNESS [None]
  - DIABETES MELLITUS INADEQUATE CONTROL [None]
  - SLEEP DISORDER [None]
  - RASH PRURITIC [None]
  - INJECTION SITE CELLULITIS [None]
  - WEIGHT DECREASED [None]
  - FATIGUE [None]
  - PURULENCE [None]
  - INJECTION SITE ABSCESS [None]
  - INJECTION SITE PAIN [None]
  - DRUG INEFFECTIVE [None]
